FAERS Safety Report 6347522-4 (Version None)
Quarter: 2009Q3

REPORT INFORMATION
  Report Type: 
  Country: None (occurrence: None)
  Receive Date: 20090910
  Receipt Date: 20090904
  Transmission Date: 20100115
  Serious: Yes (Hospitalization)
  Sender: FDA-Public Use
  Company Number: US-ELI_LILLY_AND_COMPANY-US200909001543

PATIENT
  Sex: Male

DRUGS (4)
  1. HUMALOG MIX 75/25 [Suspect]
     Dosage: 42 U, UNK
     Dates: start: 20070101
  2. HUMALOG MIX 75/25 [Suspect]
     Dates: start: 20090101
  3. NOVOLOG [Concomitant]
  4. INSULIN [Concomitant]
     Dates: start: 19990101

REACTIONS (11)
  - ANAEMIA [None]
  - ASTHENIA [None]
  - BLOOD PRESSURE ABNORMAL [None]
  - CARDIAC DISORDER [None]
  - DRUG DISPENSING ERROR [None]
  - FALL [None]
  - LOWER LIMB FRACTURE [None]
  - PAIN IN EXTREMITY [None]
  - PERIPHERAL VASCULAR DISORDER [None]
  - REACTION TO AZO-DYES [None]
  - RESPIRATORY DISORDER [None]
